FAERS Safety Report 10205946 (Version 1)
Quarter: 2014Q2

REPORT INFORMATION
  Report Type: Report from Study
  Country: US (occurrence: US)
  Receive Date: 20140530
  Receipt Date: 20140530
  Transmission Date: 20141212
  Serious: Yes (Other)
  Sender: FDA-Public Use
  Company Number: US-BRISTOL-MYERS SQUIBB COMPANY-20822474

PATIENT
  Age: 64 Year
  Sex: Male
  Weight: 113.38 kg

DRUGS (2)
  1. GLUCOPHAGE [Suspect]
     Indication: TYPE 2 DIABETES MELLITUS
  2. JANUVIA [Suspect]
     Indication: TYPE 2 DIABETES MELLITUS

REACTIONS (1)
  - Medullary thyroid cancer [Unknown]
